FAERS Safety Report 6475914-1 (Version None)
Quarter: 2009Q4

REPORT INFORMATION
  Report Type: 
  Country: None (occurrence: None)
  Receive Date: 20091204
  Receipt Date: 20091117
  Transmission Date: 20100525
  Serious: Yes (Other)
  Sender: FDA-Public Use
  Company Number: PHHY2009SA52892

PATIENT
  Age: 54 Year
  Sex: Male
  Weight: 125 kg

DRUGS (5)
  1. DIOVAN [Suspect]
     Indication: HYPERTENSION
     Dosage: 320 MG DAILY
     Route: 048
     Dates: start: 20090923, end: 20091111
  2. CONCOR [Concomitant]
     Dosage: UNK
  3. LYRICA [Concomitant]
     Dosage: UNK
  4. PHYSIOTENS [Concomitant]
     Dosage: UNK
  5. INSULIN HUMAN [Concomitant]
     Dosage: UNK

REACTIONS (1)
  - PROTEINURIA [None]
